FAERS Safety Report 25589069 (Version 2)
Quarter: 2025Q3

REPORT INFORMATION
  Report Type: Spontaneous
  Country: US (occurrence: US)
  Receive Date: 20250722
  Receipt Date: 20250813
  Transmission Date: 20251020
  Serious: No
  Sender: TEVA
  Company Number: US-TEVA-VS-3350869

PATIENT
  Age: 44 Year
  Sex: Female

DRUGS (2)
  1. ADDERALL [Suspect]
     Active Substance: AMPHETAMINE ASPARTATE\AMPHETAMINE SULFATE\DEXTROAMPHETAMINE SACCHARATE\DEXTROAMPHETAMINE SULFATE
     Indication: Product used for unknown indication
     Route: 065
  2. ADDERALL [Suspect]
     Active Substance: AMPHETAMINE ASPARTATE\AMPHETAMINE SULFATE\DEXTROAMPHETAMINE SACCHARATE\DEXTROAMPHETAMINE SULFATE
     Indication: Product used for unknown indication
     Route: 065
     Dates: start: 202506

REACTIONS (18)
  - Tremor [Unknown]
  - Dry mouth [Unknown]
  - Abdominal pain upper [Unknown]
  - Depression [Unknown]
  - Drug ineffective [Unknown]
  - Fatigue [Unknown]
  - Irritability [Unknown]
  - Brain fog [Unknown]
  - Anxiety [Unknown]
  - Headache [Unknown]
  - Disturbance in attention [Unknown]
  - Product physical issue [Unknown]
  - Feeling abnormal [Unknown]
  - Oropharyngeal discomfort [Unknown]
  - Pain [Unknown]
  - Suspected counterfeit product [Unknown]
  - Pain in extremity [Unknown]
  - Product colour issue [Unknown]

NARRATIVE: CASE EVENT DATE: 20250701
